FAERS Safety Report 20335451 (Version 1)
Quarter: 2022Q1

REPORT INFORMATION
  Report Type: Spontaneous
  Country: US (occurrence: US)
  Receive Date: 20220114
  Receipt Date: 20220114
  Transmission Date: 20220423
  Serious: No
  Sender: FDA-Public Use
  Company Number: US-MICRO LABS LIMITED-ML2022-00037

PATIENT
  Sex: Female

DRUGS (12)
  1. DORZOLAMIDE HYDROCHLORIDE [Suspect]
     Active Substance: DORZOLAMIDE HYDROCHLORIDE
     Indication: Glaucoma
     Dosage: ONE DROP, THREE TIMES A DAY
     Route: 047
     Dates: start: 202111
  2. DORZOLAMIDE HYDROCHLORIDE [Suspect]
     Active Substance: DORZOLAMIDE HYDROCHLORIDE
     Dosage: ONE DROP, TWICE A DAY
     Route: 047
  3. TORSEMIDE [Concomitant]
     Active Substance: TORSEMIDE
     Indication: Blood pressure measurement
     Dosage: BLOOD PRESSURE MEDICATION
  4. POTASSIUM CHLORIDE [Concomitant]
     Active Substance: POTASSIUM CHLORIDE
  5. ASPIRIN [Concomitant]
     Active Substance: ASPIRIN
     Dosage: ONE EVERY OTHER NIGHT
  6. OMEGA-3 69 FISH OIL [Concomitant]
  7. BIOTIN [Concomitant]
     Active Substance: BIOTIN
  8. COENZYME Q10 [Concomitant]
     Active Substance: DIETARY SUPPLEMENT\UBIDECARENONE
  9. CALCIUM [Concomitant]
     Active Substance: CALCIUM
     Dosage: ONE OF THOSE THREE TIMES A DAY
  10. MAGNESIUM [Concomitant]
     Active Substance: MAGNESIUM
     Dosage: ONE OF THOSE THREE TIMES A DAY
  11. ZINC [Concomitant]
     Active Substance: ZINC
     Dosage: ONE OF THOSE THREE TIMES A DAY
  12. VITAMINS [Concomitant]
     Active Substance: VITAMINS
     Dosage: MULTI VITAMIN ONCE EVERY OTHER DAY

REACTIONS (3)
  - Vitreous floaters [Not Recovered/Not Resolved]
  - Photopsia [Not Recovered/Not Resolved]
  - Inappropriate schedule of product administration [Unknown]

NARRATIVE: CASE EVENT DATE: 20210101
